FAERS Safety Report 12991214 (Version 1)
Quarter: 2016Q4

REPORT INFORMATION
  Report Type: Spontaneous
  Country: US (occurrence: US)
  Receive Date: 20161201
  Receipt Date: 20161201
  Transmission Date: 20170207
  Serious: Yes (Life-Threatening)
  Sender: FDA-Public Use
  Company Number: None

PATIENT
  Age: 62 Year
  Sex: Male
  Weight: 70 kg

DRUGS (1)
  1. TECENTRIQ [Suspect]
     Active Substance: ATEZOLIZUMAB
     Indication: GASTROINTESTINAL CANCER METASTATIC
     Dates: start: 20161124, end: 20161201

REACTIONS (1)
  - Proctitis [None]

NARRATIVE: CASE EVENT DATE: 20161125
